FAERS Safety Report 14837194 (Version 1)
Quarter: 2018Q2

REPORT INFORMATION
  Report Type: Spontaneous
  Country: US (occurrence: US)
  Receive Date: 20180502
  Receipt Date: 20180502
  Transmission Date: 20180711
  Serious: Yes (Hospitalization)
  Sender: FDA-Public Use
  Company Number: US-COLLEGIUM PHARMACEUTICAL, INC.-US-2018DEP000929

PATIENT

DRUGS (3)
  1. NUCYNTA [Suspect]
     Active Substance: TAPENTADOL HYDROCHLORIDE
     Indication: ARTHRALGIA
     Dosage: 50 MG, 2-3 X PER DAY AS NEEDED
     Route: 048
     Dates: start: 201803, end: 20180320
  2. NUCYNTA [Suspect]
     Active Substance: TAPENTADOL HYDROCHLORIDE
     Dosage: TAPERED OFF OVER TWO WEEKS AND BY THE LAST TWO DAYS SPLITTING THE PILLS IN HALF
     Dates: start: 20180324, end: 201804
  3. NUCYNTA [Suspect]
     Active Substance: TAPENTADOL HYDROCHLORIDE
     Dosage: 100 MG, UNK
     Dates: start: 20180321, end: 20180323

REACTIONS (2)
  - Wrong technique in product usage process [Unknown]
  - Hip arthroplasty [Unknown]

NARRATIVE: CASE EVENT DATE: 2018
